FAERS Safety Report 9216951 (Version 1)
Quarter: 2013Q2

REPORT INFORMATION
  Report Type: Spontaneous
  Country: IT (occurrence: None)
  Receive Date: 20130404
  Receipt Date: 20130404
  Transmission Date: 20140414
  Serious: Yes (Other)
  Sender: FDA-Public Use
  Company Number: 1656947

PATIENT
  Age: 52 Year
  Sex: Female
  Weight: 85 kg

DRUGS (5)
  1. CARBOPLATIN [Suspect]
     Indication: OVARIAN CANCER
     Dosage: CYCLICAL
     Route: 042
     Dates: start: 20130108, end: 20130108
  2. (PACLITAXEL) [Concomitant]
  3. (LOPRESOR  /00376902/) [Concomitant]
  4. (ALMARYTM) [Concomitant]
  5. (APROVEL) [Concomitant]

REACTIONS (3)
  - Headache [None]
  - Suffocation feeling [None]
  - Infusion related reaction [None]
